FAERS Safety Report 10131463 (Version 1)
Quarter: 2014Q2

REPORT INFORMATION
  Report Type: Report from Study
  Country: BR (occurrence: BR)
  Receive Date: 20140428
  Receipt Date: 20140428
  Transmission Date: 20141212
  Serious: Yes (Other)
  Sender: FDA-Public Use
  Company Number: PHHY2014BR050889

PATIENT
  Sex: Female
  Weight: 69 kg

DRUGS (1)
  1. DIOVAN HCT [Suspect]
     Indication: HYPERTENSION
     Dosage: 1 DF, DAILY (28 TABLETS)
     Route: 048

REACTIONS (5)
  - Dizziness [Recovering/Resolving]
  - Cerebrovascular accident [Recovering/Resolving]
  - Memory impairment [Recovering/Resolving]
  - Malaise [Recovering/Resolving]
  - Feeling abnormal [Recovering/Resolving]
